FAERS Safety Report 5249626-6 (Version None)
Quarter: 2007Q1

REPORT INFORMATION
  Report Type: 
  Country: None (occurrence: None)
  Receive Date: 20070228
  Receipt Date: 20060620
  Transmission Date: 20070707
  Serious: No
  Sender: FDA-Public Use
  Company Number: US-GLAXOSMITHKLINE-A0606362A

PATIENT
  Age: 29 Year
  Sex: Female

DRUGS (4)
  1. IMITREX [Suspect]
     Indication: MIGRAINE
     Dosage: .5ML AS REQUIRED
     Route: 058
     Dates: start: 20060301
  2. LEVOTHYROXINE SODIUM [Concomitant]
  3. CYTOMEL [Concomitant]
  4. INDERAL [Concomitant]

REACTIONS (3)
  - CONTUSION [None]
  - INJECTION SITE PAIN [None]
  - PHARMACEUTICAL PRODUCT COMPLAINT [None]
